FAERS Safety Report 5353803-3 (Version None)
Quarter: 2007Q2

REPORT INFORMATION
  Report Type: 
  Country: None (occurrence: None)
  Receive Date: 20070608
  Receipt Date: 20070608
  Transmission Date: 20071010
  Serious: Yes (Other)
  Sender: FDA-Public Use
  Company Number: None

PATIENT
  Age: 56 Year
  Sex: Female

DRUGS (3)
  1. PHOSPHOSODA FLAVOR NOT SPECIFIED [Suspect]
     Indication: COLONOSCOPY
     Dosage: 45 ML; X1; PO
     Route: 048
     Dates: start: 20070207, end: 20070207
  2. FLEET ENEMA (SODIUM PHOSPHATE) [Suspect]
     Dosage: RTL
     Route: 054
     Dates: start: 20070208, end: 20070208
  3. DULCOLAX [Suspect]
     Dosage: 10 MG PO
     Route: 048
     Dates: start: 20070207, end: 20070207

REACTIONS (5)
  - ANURIA [None]
  - HYPERTENSION [None]
  - LETHARGY [None]
  - POST PROCEDURAL COMPLICATION [None]
  - RENAL FAILURE ACUTE [None]
